FAERS Safety Report 25041683 (Version 1)
Quarter: 2025Q1

REPORT INFORMATION
  Report Type: Spontaneous
  Country: CA (occurrence: CA)
  Receive Date: 20250305
  Receipt Date: 20250305
  Transmission Date: 20250408
  Serious: Yes (Death, Other)
  Sender: TEVA
  Company Number: CA-TEVA-VS-3306334

PATIENT
  Age: 8 Year

DRUGS (2)
  1. PROPRANOLOL [Suspect]
     Active Substance: PROPRANOLOL HYDROCHLORIDE
     Indication: Off label use
     Route: 048
  2. FLECAINIDE [Suspect]
     Active Substance: FLECAINIDE
     Indication: Ventricular tachycardia
     Route: 065

REACTIONS (4)
  - Death [Fatal]
  - Off label use [Fatal]
  - Product use in unapproved indication [Fatal]
  - Product use issue [Fatal]
